FAERS Safety Report 13956235 (Version 4)
Quarter: 2018Q3

REPORT INFORMATION
  Report Type: Spontaneous
  Country: US (occurrence: US)
  Receive Date: 20170911
  Receipt Date: 20180928
  Transmission Date: 20181010
  Serious: Yes (Other)
  Sender: FDA-Public Use
  Company Number: US-DSJP-DSU-2017-136398

PATIENT

DRUGS (5)
  1. BENICAR [Suspect]
     Active Substance: OLMESARTAN MEDOXOMIL
     Indication: HYPERTENSION
     Dosage: 20 MG, QD
  2. BENICAR HCT [Suspect]
     Active Substance: HYDROCHLOROTHIAZIDE\OLMESARTAN MEDOXOMIL
     Dosage: 40/12.5 MG, QD
     Route: 048
     Dates: start: 20180219
  3. BENICAR HCT [Suspect]
     Active Substance: HYDROCHLOROTHIAZIDE\OLMESARTAN MEDOXOMIL
     Indication: HYPERTENSION
     Dosage: 20/12.5 MG, QD
     Dates: start: 20091006, end: 20170511
  4. BENICAR HCT [Suspect]
     Active Substance: HYDROCHLOROTHIAZIDE\OLMESARTAN MEDOXOMIL
     Dosage: 20/12.5 MG, BID
     Dates: start: 20121218
  5. BENICAR [Suspect]
     Active Substance: OLMESARTAN MEDOXOMIL
     Dosage: 40 MG, QD
     Dates: start: 2017

REACTIONS (15)
  - Peptic ulcer [Unknown]
  - Gastric polyps [Unknown]
  - Erosive oesophagitis [Unknown]
  - Gastric ulcer [Recovering/Resolving]
  - Irritable bowel syndrome [Recovering/Resolving]
  - Chronic kidney disease [Unknown]
  - Haemorrhoids [Unknown]
  - Duodenal ulcer haemorrhage [Unknown]
  - Gastrooesophageal reflux disease [Unknown]
  - Gastritis erosive [Unknown]
  - Gastrointestinal haemorrhage [Unknown]
  - Overgrowth bacterial [Unknown]
  - Hiatus hernia [Not Recovered/Not Resolved]
  - Diverticulum intestinal [Not Recovered/Not Resolved]
  - Gastric disorder [Unknown]

NARRATIVE: CASE EVENT DATE: 20090410
